FAERS Safety Report 15278996 (Version 2)
Quarter: 2018Q3

REPORT INFORMATION
  Report Type: Report from Study
  Country: IT (occurrence: IT)
  Receive Date: 20180815
  Receipt Date: 20180820
  Transmission Date: 20181010
  Serious: Yes (Hospitalization)
  Sender: FDA-Public Use
  Company Number: IT-ROCHE-2130854

PATIENT
  Age: 77 Year
  Sex: Male
  Weight: 77 kg

DRUGS (17)
  1. CONGESCOR [Concomitant]
     Active Substance: BISOPROLOL
     Route: 048
     Dates: start: 2012
  2. PANTOPRAZOLE [Concomitant]
     Active Substance: PANTOPRAZOLE
     Dosage: ONGOING
     Route: 048
     Dates: start: 20180716
  3. TEOFILLINA [Concomitant]
     Route: 048
     Dates: start: 20180407, end: 201804
  4. ATEZOLIZUMAB. [Suspect]
     Active Substance: ATEZOLIZUMAB
     Indication: LUNG NEOPLASM MALIGNANT
     Dosage: DATE OF MOST RECENT DOSE 1200 MG OF ATEZOLIZUMAB PRIOR TO SAE ONSET ON 14/MAY/2018 AND 21/JUN/2018
     Route: 042
     Dates: start: 20180423
  5. PANTOPRAZOLO [Concomitant]
     Active Substance: PANTOPRAZOLE SODIUM
     Indication: PROPHYLAXIS
     Route: 048
     Dates: start: 2012, end: 20180626
  6. CARDIOASPIRINA [Concomitant]
     Active Substance: ASPIRIN
     Route: 048
     Dates: start: 2012, end: 20180629
  7. PANTOPRAZOLE [Concomitant]
     Active Substance: PANTOPRAZOLE
     Indication: PROPHYLAXIS
     Route: 048
     Dates: start: 20180627, end: 20180715
  8. TORVASTIN [Concomitant]
     Route: 048
     Dates: start: 2012
  9. LASIX [Concomitant]
     Active Substance: FUROSEMIDE
     Route: 048
     Dates: start: 2012
  10. PALEXIA [Concomitant]
     Active Substance: TAPENTADOL HYDROCHLORIDE
     Route: 048
     Dates: start: 20180514
  11. ALLOPURINOL. [Concomitant]
     Active Substance: ALLOPURINOL
     Route: 048
     Dates: start: 20180410
  12. CALCIUM CARBONATE. [Concomitant]
     Active Substance: CALCIUM CARBONATE
     Indication: BLOOD CALCIUM DECREASED
     Route: 048
     Dates: start: 20180712, end: 20180714
  13. CLEXANE [Concomitant]
     Active Substance: ENOXAPARIN SODIUM
     Indication: PROPHYLAXIS
     Route: 058
     Dates: start: 20180327
  14. AZITROMICINA [Concomitant]
     Active Substance: AZITHROMYCIN DIHYDRATE
     Route: 048
     Dates: start: 20180407, end: 201804
  15. CARDIOASPIRINA [Concomitant]
     Active Substance: ASPIRIN
     Route: 048
     Dates: start: 20180703
  16. PALEXIA [Concomitant]
     Active Substance: TAPENTADOL HYDROCHLORIDE
     Route: 048
     Dates: start: 20180507, end: 20180512
  17. CLENIL (ITALY) [Concomitant]
     Route: 050
     Dates: start: 20180708, end: 20180708

REACTIONS (2)
  - Diarrhoea [Recovered/Resolved]
  - Enterocolitis infectious [Recovered/Resolved]

NARRATIVE: CASE EVENT DATE: 20180525
